FAERS Safety Report 4442857-4 (Version None)
Quarter: 2004Q3

REPORT INFORMATION
  Report Type: 
  Country: None (occurrence: None)
  Receive Date: 20040903
  Receipt Date: 20040525
  Transmission Date: 20050211
  Serious: Yes (Other)
  Sender: FDA-Public Use
  Company Number: 2004UW10920

PATIENT
  Age: 64 Year
  Sex: Female
  Weight: 76.6579 kg

DRUGS (5)
  1. CRESTOR [Suspect]
     Indication: BLOOD CHOLESTEROL INCREASED
     Dosage: 2.5 MG QOD PO
     Route: 048
  2. CRESTOR [Suspect]
     Indication: BLOOD CHOLESTEROL INCREASED
     Dosage: 2.5 MG QD PO
     Route: 048
  3. ZETIA [Concomitant]
  4. EFFEXOR [Concomitant]
  5. ALLEGRA [Concomitant]

REACTIONS (1)
  - CYSTITIS INTERSTITIAL [None]
